FAERS Safety Report 7573370-3 (Version None)
Quarter: 2011Q2

REPORT INFORMATION
  Report Type: 
  Country: None (occurrence: None)
  Receive Date: 20110627
  Receipt Date: 20110623
  Transmission Date: 20111010
  Serious: Yes (Death)
  Sender: FDA-Public Use
  Company Number: PHHY2011MX56006

PATIENT
  Age: 80 Year
  Sex: Male

DRUGS (1)
  1. STALEVO 100 [Suspect]
     Indication: PARKINSON'S DISEASE
     Dosage: 1 DF, (200 MG OF ENTACAPONE, 100 MG OF LEVODOPA AND 25 MG OF CARBIDOPA) DAILY

REACTIONS (1)
  - MYOCARDIAL INFARCTION [None]
